FAERS Safety Report 21203698 (Version 6)
Quarter: 2024Q2

REPORT INFORMATION
  Report Type: Report from Study
  Country: CA (occurrence: CA)
  Receive Date: 20220811
  Receipt Date: 20240516
  Transmission Date: 20240716
  Serious: Yes (Death, Hospitalization, Other)
  Sender: FDA-Public Use
  Company Number: CA-JAZZ-2022-CA-026305

PATIENT
  Age: 37 Year
  Sex: Female

DRUGS (25)
  1. XYREM [Suspect]
     Active Substance: SODIUM OXYBATE
     Indication: Cataplexy
     Dosage: 1.5G, ONE NIGHTLY DOSE
     Route: 048
     Dates: start: 20190319, end: 201904
  2. XYREM [Suspect]
     Active Substance: SODIUM OXYBATE
     Indication: Narcolepsy
     Dosage: 6 G, DIVIDED IN TWO EQUAL DOSES (QHS AND 2.5 - 4HRS AFTER 1ST DOSE)
     Route: 048
     Dates: start: 201904, end: 201911
  3. XYREM [Suspect]
     Active Substance: SODIUM OXYBATE
     Dosage: 6.5G, DIVIDED IN TWO EQUAL DOSES (QHS AND 2.5 - 4HRS AFTER 1ST DOSE)
     Route: 048
     Dates: start: 201911, end: 202002
  4. XYREM [Suspect]
     Active Substance: SODIUM OXYBATE
     Dosage: 6.75G, DIVIDED IN TWO EQUAL DOSES (QHS AND 2.5 - 4HRS AFTER 1ST DOSE)
     Route: 048
     Dates: start: 202002, end: 20200401
  5. XYREM [Suspect]
     Active Substance: SODIUM OXYBATE
     Dosage: 7.5G, DIVIDED IN TWO EQUAL DOSES (QHS AND 2.5 - 4HRS AFTER 1ST DOSE)
     Route: 048
     Dates: start: 20200402, end: 202101
  6. XYREM [Suspect]
     Active Substance: SODIUM OXYBATE
     Dosage: 8G, DIVIDED IN TWO EQUAL DOSES (QHS AND 2.5 - 4HRS AFTER 1ST DOSE)
     Route: 048
     Dates: start: 202101, end: 20210212
  7. XYREM [Suspect]
     Active Substance: SODIUM OXYBATE
     Dosage: 8.5G, ONE NIGHTLY
     Route: 048
     Dates: start: 20210213
  8. XYREM [Suspect]
     Active Substance: SODIUM OXYBATE
     Dosage: 4.5 GRAM, QD
     Route: 048
  9. XYREM [Suspect]
     Active Substance: SODIUM OXYBATE
     Dosage: 4.5 GRAM, BID
     Route: 048
     Dates: start: 2023, end: 2023
  10. XYREM [Suspect]
     Active Substance: SODIUM OXYBATE
     Dosage: 9 GRAM ONCE NIGHTLY DOSE
     Route: 048
     Dates: start: 2023, end: 2023
  11. XYREM [Suspect]
     Active Substance: SODIUM OXYBATE
     Dosage: 9 GRAM ONCE NIGHTLY DOSE
     Route: 048
     Dates: start: 2023
  12. XYREM [Suspect]
     Active Substance: SODIUM OXYBATE
     Dosage: 4 GRAM, BID (2 MONTHS)
     Route: 048
  13. BETAHISTINE [Concomitant]
     Active Substance: BETAHISTINE
     Indication: Product used for unknown indication
     Dosage: DOSE : UNKNOWN
     Dates: start: 201907
  14. HYDROXYZINE [Concomitant]
     Active Substance: HYDROXYZINE HYDROCHLORIDE
     Indication: Product used for unknown indication
     Dosage: DOSE : UNKNOWN
     Dates: start: 20190710
  15. LEVOMEPROMAZINE MALEATE [Concomitant]
     Active Substance: LEVOMEPROMAZINE MALEATE
     Indication: Product used for unknown indication
     Dosage: 5 MG PO HS (TO BE DISCONTINUED WHILE ON XYREM)
     Route: 048
  16. KEPPRA [Concomitant]
     Active Substance: LEVETIRACETAM
     Indication: Product used for unknown indication
     Dosage: 250 MILLIGRAM, HS
     Route: 048
  17. DEPAKOTE [Concomitant]
     Active Substance: DIVALPROEX SODIUM
     Indication: Product used for unknown indication
     Dosage: 750 MILLIGRAM, QD
     Route: 048
  18. PANTOPRAZOLE SODIUM [Concomitant]
     Active Substance: PANTOPRAZOLE SODIUM
     Indication: Product used for unknown indication
     Dosage: UNK
  19. SUBOXONE [Concomitant]
     Active Substance: BUPRENORPHINE HYDROCHLORIDE\NALOXONE HYDROCHLORIDE
     Indication: Product used for unknown indication
     Dosage: UNK
  20. ONDANSETRON [Concomitant]
     Active Substance: ONDANSETRON
     Indication: Product used for unknown indication
     Dosage: PRN
  21. TYLENOL [Concomitant]
     Active Substance: ACETAMINOPHEN
     Indication: Product used for unknown indication
     Dosage: PRN
  22. ALEVE [Concomitant]
     Active Substance: NAPROXEN SODIUM
     Indication: Product used for unknown indication
     Dosage: PRN
  23. LEVOMEPROMAZINE MALEATE [Concomitant]
     Active Substance: LEVOMEPROMAZINE MALEATE
     Indication: Product used for unknown indication
     Dosage: 5 MILLIGRAM
     Route: 048
  24. PANTOPRAZOLE SODIUM [Concomitant]
     Active Substance: PANTOPRAZOLE SODIUM
     Indication: Product used for unknown indication
  25. DIVALPROEX SODIUM [Concomitant]
     Active Substance: DIVALPROEX SODIUM
     Dosage: 750 MILLIGRAM, QD
     Route: 048

REACTIONS (5)
  - Death [Fatal]
  - Loss of consciousness [Unknown]
  - Illness [Unknown]
  - Contusion [Unknown]
  - Fall [Unknown]

NARRATIVE: CASE EVENT DATE: 20220804
